FAERS Safety Report 14529173 (Version 1)
Quarter: 2018Q1

REPORT INFORMATION
  Report Type: Spontaneous
  Country: US (occurrence: US)
  Receive Date: 20180213
  Receipt Date: 20180213
  Transmission Date: 20180509
  Serious: Yes (Death)
  Sender: FDA-Public Use
  Company Number: None

PATIENT
  Age: 61 Year
  Sex: Female

DRUGS (11)
  1. SULFAMETHOXAZOLE [Concomitant]
     Active Substance: SULFAMETHOXAZOLE
  2. FENTANYL. [Concomitant]
     Active Substance: FENTANYL
  3. TEMAZEPAM. [Concomitant]
     Active Substance: TEMAZEPAM
  4. POTASSIUM [Concomitant]
     Active Substance: POTASSIUM
  5. SENNA [Concomitant]
     Active Substance: SENNA LEAF\SENNOSIDES\SENNOSIDES A AND B
  6. HYDROMORPHONE [Concomitant]
     Active Substance: HYDROMORPHONE
  7. GABAPENTIN. [Concomitant]
     Active Substance: GABAPENTIN
  8. LONSURF [Suspect]
     Active Substance: TIPIRACIL HYDROCHLORIDE\TRIFLURIDINE
     Indication: APPENDIX CANCER
     Route: 048
     Dates: start: 20170204
  9. FAMCICLOVIR. [Concomitant]
     Active Substance: FAMCICLOVIR
  10. MORPHINE [Concomitant]
     Active Substance: MORPHINE
  11. CEPHALEXIN. [Concomitant]
     Active Substance: CEPHALEXIN

REACTIONS (1)
  - Death [None]

NARRATIVE: CASE EVENT DATE: 20180210
